FAERS Safety Report 25721106 (Version 1)
Quarter: 2025Q3

REPORT INFORMATION
  Report Type: Spontaneous
  Country: US (occurrence: None)
  Receive Date: 20250822
  Receipt Date: 20250822
  Transmission Date: 20251021
  Serious: Yes (Life-Threatening, Disabling)
  Sender: FDA-CTU
  Company Number: None

PATIENT
  Age: 73 Year
  Sex: Female
  Weight: 70.02 kg

DRUGS (6)
  1. REXULTI [Suspect]
     Active Substance: BREXPIPRAZOLE
     Indication: Dementia
     Dates: start: 20250521, end: 20250801
  2. REXULTI [Suspect]
     Active Substance: BREXPIPRAZOLE
     Indication: Agitation
  3. SEROQUEL [Suspect]
     Active Substance: QUETIAPINE FUMARATE
     Indication: Dementia
  4. SEROQUEL [Suspect]
     Active Substance: QUETIAPINE FUMARATE
     Indication: Agitation
  5. REXULTI [Concomitant]
     Active Substance: BREXPIPRAZOLE
     Dates: start: 20250521, end: 20250801
  6. SEROQUEL [Concomitant]
     Active Substance: QUETIAPINE FUMARATE
     Dates: start: 20250311, end: 20250801

REACTIONS (11)
  - Mood altered [None]
  - Asthenia [None]
  - Hypophagia [None]
  - Fall [None]
  - Duplicate therapy error [None]
  - Muscle rigidity [None]
  - Hyperhidrosis [None]
  - Tachycardia [None]
  - Unevaluable event [None]
  - Dysphagia [None]
  - Therapy interrupted [None]

NARRATIVE: CASE EVENT DATE: 20250807
